FAERS Safety Report 7018677-3 (Version None)
Quarter: 2010Q3

REPORT INFORMATION
  Report Type: 
  Country: None (occurrence: None)
  Receive Date: 20100924
  Receipt Date: 20100923
  Transmission Date: 20110219
  Serious: Yes (Other)
  Sender: FDA-Public Use
  Company Number: 10-089-01

PATIENT
  Age: 4 Year
  Sex: Male

DRUGS (3)
  1. LEVETIRACETAM [Suspect]
     Indication: CONVULSION
     Dosage: 1000 MG;QD
  2. CLOBAZAM [Concomitant]
  3. TOPIRAMATE [Concomitant]

REACTIONS (6)
  - ABNORMAL BEHAVIOUR [None]
  - CONDITION AGGRAVATED [None]
  - FEBRILE CONVULSION [None]
  - GRAND MAL CONVULSION [None]
  - MENTAL RETARDATION [None]
  - SPEECH DISORDER [None]
